FAERS Safety Report 14455337 (Version 1)
Quarter: 2018Q1

REPORT INFORMATION
  Report Type: Spontaneous
  Country: US (occurrence: US)
  Receive Date: 20180129
  Receipt Date: 20180129
  Transmission Date: 20180509
  Serious: Yes (Hospitalization)
  Sender: FDA-Public Use
  Company Number: US-VIFOR (INTERNATIONAL) INC.-VIT-2018-00956

PATIENT
  Sex: Male

DRUGS (10)
  1. ASPIR-81 [Concomitant]
     Active Substance: ASPIRIN
  2. GLIPIZIDE. [Concomitant]
     Active Substance: GLIPIZIDE
  3. VITAMIN D3 [Concomitant]
     Active Substance: CHOLECALCIFEROL
  4. AMLODIPINE BESILATE [Concomitant]
     Active Substance: AMLODIPINE BESYLATE
  5. ATORVASTATIN CALCIUM. [Concomitant]
     Active Substance: ATORVASTATIN CALCIUM
  6. LISINOPRIL. [Concomitant]
     Active Substance: LISINOPRIL
  7. VELTASSA [Suspect]
     Active Substance: PATIROMER
     Indication: HYPERKALAEMIA
     Route: 048
     Dates: start: 20170407
  8. FUROSEMIDE. [Concomitant]
     Active Substance: FUROSEMIDE
  9. PROCRIT [Concomitant]
     Active Substance: ERYTHROPOIETIN
  10. LATANOPROST. [Concomitant]
     Active Substance: LATANOPROST

REACTIONS (1)
  - Renal failure [Unknown]
